FAERS Safety Report 7928095-9 (Version None)
Quarter: 2011Q4

REPORT INFORMATION
  Report Type: 
  Country: None (occurrence: None)
  Receive Date: 20111118
  Receipt Date: 20111108
  Transmission Date: 20120403
  Serious: Yes (Hospitalization)
  Sender: FDA-Public Use
  Company Number: JP-GLAXOSMITHKLINE-B0761541A

PATIENT
  Sex: Male

DRUGS (27)
  1. FUNGIZONE [Suspect]
     Indication: INFECTION
     Dates: start: 20010814, end: 20010820
  2. GRAN [Concomitant]
     Dates: start: 20010808, end: 20010817
  3. NEUQUINON [Concomitant]
     Dates: start: 20010803, end: 20010814
  4. METHYCOBAL [Concomitant]
     Dates: start: 20010727, end: 20010814
  5. VOLTAREN-XR [Concomitant]
     Dates: start: 20010727, end: 20010809
  6. VOLTAREN-XR [Concomitant]
     Dates: start: 20010821
  7. AMIKACIN SULFATE [Concomitant]
     Indication: INFECTION
     Dates: start: 20010812, end: 20010814
  8. GRAN [Concomitant]
     Dates: start: 20010818, end: 20010820
  9. FAMOTIDINE [Concomitant]
     Dates: start: 20010815, end: 20010820
  10. LENDORMIN [Concomitant]
     Dates: start: 20010608, end: 20010814
  11. MINOCYCLINE HCL [Concomitant]
     Indication: INFECTION
     Dates: start: 20010814, end: 20010820
  12. MAGNESIUM OXIDE [Concomitant]
     Dates: start: 20010609, end: 20010814
  13. BACCIDAL [Concomitant]
     Dates: start: 20010803, end: 20010814
  14. ZOFRAN [Concomitant]
     Dates: start: 20010804, end: 20010805
  15. PRIMPERAN TAB [Concomitant]
     Dates: start: 20010805, end: 20010815
  16. FAMOTIDINE [Concomitant]
     Dates: start: 20010604, end: 20010814
  17. HAPTOGLOBIN [Concomitant]
     Dates: start: 20010807, end: 20010807
  18. ALKERAN [Suspect]
     Indication: STEM CELL TRANSPLANT
     Route: 065
     Dates: start: 20010804, end: 20010805
  19. HEPARIN [Concomitant]
     Dates: start: 20010807, end: 20010820
  20. CARBENIN [Concomitant]
     Indication: INFECTION
     Dates: start: 20010814, end: 20010820
  21. GLAKAY [Concomitant]
     Dates: start: 20010606, end: 20010814
  22. RIZE [Concomitant]
     Dates: start: 20010623, end: 20010814
  23. SOLU-MEDROL [Concomitant]
     Dates: start: 20010807, end: 20010807
  24. ATARAX [Concomitant]
     Dates: start: 20010807, end: 20010807
  25. AREDIA [Concomitant]
     Dates: start: 20010814, end: 20010814
  26. DIFLUCAN [Concomitant]
     Dates: start: 20010803, end: 20010814
  27. KEITEN [Concomitant]
     Indication: INFECTION
     Dates: start: 20010812, end: 20010814

REACTIONS (3)
  - HYPOKALAEMIA [None]
  - STOMATITIS [None]
  - INFECTION [None]
